FAERS Safety Report 23309776 (Version 2)
Quarter: 2024Q1

REPORT INFORMATION
  Report Type: Spontaneous
  Country: FR (occurrence: None)
  Receive Date: 20231218
  Receipt Date: 20240218
  Transmission Date: 20240410
  Serious: Yes (Hospitalization, Other)
  Sender: FDA-Public Use
  Company Number: 2023A285971

PATIENT
  Age: 7 Month
  Sex: Male
  Weight: 7 kg

DRUGS (1)
  1. BEYFORTUS [Suspect]
     Active Substance: NIRSEVIMAB-ALIP
     Dosage: 100 MG
     Dates: start: 20230929, end: 20230929

REACTIONS (1)
  - Respiratory syncytial virus bronchiolitis [Unknown]
